FAERS Safety Report 18669695 (Version 2)
Quarter: 2021Q2

REPORT INFORMATION
  Report Type: Other
  Country: ES (occurrence: ES)
  Receive Date: 20201228
  Receipt Date: 20210405
  Transmission Date: 20210717
  Serious: Yes (Death, Hospitalization)
  Sender: FDA-Public Use
  Company Number: ES-ROCHE-2739401

PATIENT
  Age: 11 Year
  Sex: Female

DRUGS (7)
  1. TOCILIZUMAB. [Suspect]
     Active Substance: TOCILIZUMAB
     Indication: COVID-19
     Route: 065
  2. MYCOPHENOLATE MOFETIL. [Suspect]
     Active Substance: MYCOPHENOLATE MOFETIL
     Indication: INTERSTITIAL LUNG DISEASE
     Route: 065
  3. TACROLIMUS. [Suspect]
     Active Substance: TACROLIMUS
     Indication: INTERSTITIAL LUNG DISEASE
     Route: 065
  4. PREDNISONE. [Suspect]
     Active Substance: PREDNISONE
     Indication: INTERSTITIAL LUNG DISEASE
     Route: 048
  5. TACROLIMUS. [Suspect]
     Active Substance: TACROLIMUS
     Route: 065
  6. TOFACITINIB [Concomitant]
     Active Substance: TOFACITINIB
     Indication: INTERSTITIAL LUNG DISEASE
  7. NORADRENALINE [Concomitant]
     Active Substance: NOREPINEPHRINE

REACTIONS (10)
  - Acute kidney injury [Unknown]
  - Dermatomyositis [Fatal]
  - Interstitial lung disease [Fatal]
  - Pneumothorax [Unknown]
  - Septic shock [Unknown]
  - Off label use [Unknown]
  - Bacterial sepsis [Unknown]
  - Pneumocystis jirovecii infection [Recovered/Resolved]
  - COVID-19 [Unknown]
  - Pneumomediastinum [Unknown]
